FAERS Safety Report 9728420 (Version 1)
Quarter: 2013Q4

REPORT INFORMATION
  Report Type: Spontaneous
  Country: US (occurrence: None)
  Receive Date: 20131203
  Receipt Date: 20131203
  Transmission Date: 20140711
  Serious: Yes (Other)
  Sender: FDA-Public Use
  Company Number: None

PATIENT
  Age: 71 Year
  Sex: Male
  Weight: 79 kg

DRUGS (4)
  1. VELAGLUCERASE ALFA [Suspect]
     Indication: GAUCHER^S DISEASE
     Dosage: 60 IU/KG EVERY 2 WEEKS, IV
     Route: 042
     Dates: start: 2010
  2. OMEPRAZOLE [Concomitant]
  3. ZOLEDRONIC ACID [Concomitant]
  4. EZETIMIDBE [Concomitant]

REACTIONS (3)
  - Liver function test abnormal [None]
  - Hepatocellular carcinoma [None]
  - Biliary tract disorder [None]
